FAERS Safety Report 22205810 (Version 2)
Quarter: 2023Q2

REPORT INFORMATION
  Report Type: Report from Study
  Country: CL (occurrence: CL)
  Receive Date: 20230413
  Receipt Date: 20230421
  Transmission Date: 20230721
  Serious: Yes (Other)
  Sender: FDA-Public Use
  Company Number: CL-002147023-NVSC2022CL199372

PATIENT
  Age: 60 Year
  Sex: Male

DRUGS (4)
  1. COSENTYX [Suspect]
     Active Substance: SECUKINUMAB
     Indication: Psoriatic arthropathy
     Dosage: 150 MG, QW
     Route: 058
     Dates: start: 20220826
  2. COSENTYX [Suspect]
     Active Substance: SECUKINUMAB
     Dosage: UNK
     Route: 065
  3. COSENTYX [Suspect]
     Active Substance: SECUKINUMAB
     Dosage: 150 MG
     Route: 065
     Dates: start: 20220930
  4. COSENTYX [Suspect]
     Active Substance: SECUKINUMAB
     Dosage: 150 MG, QMO
     Route: 058
     Dates: start: 20230313

REACTIONS (10)
  - Urinary retention [Unknown]
  - Headache [Recovered/Resolved]
  - Stress [Unknown]
  - Prostatitis [Unknown]
  - Urine output decreased [Unknown]
  - Back pain [Recovered/Resolved]
  - Discomfort [Unknown]
  - Vesicoureteric reflux [Unknown]
  - Gait disturbance [Unknown]
  - Device issue [Unknown]

NARRATIVE: CASE EVENT DATE: 20220826
